FAERS Safety Report 8702221 (Version 2)
Quarter: 2013Q4

REPORT INFORMATION
  Report Type: Spontaneous
  Country: US (occurrence: US)
  Receive Date: 20120803
  Receipt Date: 20131101
  Transmission Date: 20140711
  Serious: No
  Sender: FDA-Public Use
  Company Number: US-009507513-82070162

PATIENT
  Age: 70 Year
  Sex: Female

DRUGS (3)
  1. CLINORIL [Suspect]
     Dosage: 600 MG, TID
     Route: 048
     Dates: start: 198201, end: 19820614
  2. TOLINASE [Concomitant]
  3. RESTORIL (TEMAZEPAM) [Concomitant]

REACTIONS (1)
  - Alopecia [Unknown]
